FAERS Safety Report 4728123-8 (Version None)
Quarter: 2005Q3

REPORT INFORMATION
  Report Type: 
  Country: None (occurrence: None)
  Receive Date: 20050728
  Receipt Date: 20050728
  Transmission Date: 20060218
  Serious: Yes (Hospitalization)
  Sender: FDA-Public Use
  Company Number: None

PATIENT
  Age: 18 Month
  Sex: Male
  Weight: 20 kg

DRUGS (6)
  1. REGLAN [Suspect]
     Indication: GASTROOESOPHAGEAL REFLUX DISEASE
     Dosage: 1MG/DAY PO DIVIDED DOSES
     Dates: start: 20050601, end: 20050713
  2. RANITADINE [Concomitant]
  3. SEVOFLURANE [Concomitant]
  4. NITROUS OXIDE [Concomitant]
  5. IM ATROPINE [Concomitant]
  6. ALBUTEROL [Concomitant]

REACTIONS (13)
  - ANAESTHETIC COMPLICATION [None]
  - BRONCHOSPASM [None]
  - DACRYOSTENOSIS ACQUIRED [None]
  - DYSKINESIA [None]
  - DYSTONIA [None]
  - ELECTROENCEPHALOGRAM ABNORMAL [None]
  - GAZE PALSY [None]
  - HEART RATE INCREASED [None]
  - MUSCLE CONTRACTIONS INVOLUNTARY [None]
  - MUSCLE RIGIDITY [None]
  - MUSCLE TWITCHING [None]
  - OCULOGYRATION [None]
  - RESPIRATION ABNORMAL [None]
